FAERS Safety Report 4484876-8 (Version None)
Quarter: 2004Q3

REPORT INFORMATION
  Report Type: 
  Country: None (occurrence: None)
  Receive Date: 20040921
  Receipt Date: 20030909
  Transmission Date: 20050211
  Serious: Yes (Hospitalization)
  Sender: FDA-Public Use
  Company Number: 163-20785-03090290

PATIENT
  Age: 64 Year
  Sex: Male

DRUGS (8)
  1. THALOMID [Suspect]
     Indication: MULTIPLE MYELOMA
     Dosage: 200 MG, DAILY, ORAL
     Route: 048
     Dates: start: 20030804, end: 20030815
  2. DEXAMETHASONE [Suspect]
     Indication: DRUG USE FOR UNKNOWN INDICATION
     Dosage: 10 MG, DAILY, FOR 4 DAYS ON 4 DAYS OFF
  3. LIPITOR [Concomitant]
  4. POTASSIUM (POTASSIUM) [Concomitant]
  5. WELLBUTRIN (BUPROPION HYDROCHORIDE) [Concomitant]
  6. COUMADIN [Concomitant]
  7. PROBENECID [Concomitant]
  8. COLCHICINE (COLCHICINE) [Concomitant]

REACTIONS (11)
  - ABASIA [None]
  - ASTHENIA [None]
  - DEEP VEIN THROMBOSIS [None]
  - DIZZINESS [None]
  - DYSPHONIA [None]
  - DYSPNOEA [None]
  - HICCUPS [None]
  - MUSCLE CRAMP [None]
  - OEDEMA PERIPHERAL [None]
  - PAIN IN EXTREMITY [None]
  - PELVIC PAIN [None]
